FAERS Safety Report 16424770 (Version 3)
Quarter: 2019Q3

REPORT INFORMATION
  Report Type: Spontaneous
  Country: US (occurrence: US)
  Receive Date: 20190613
  Receipt Date: 20190702
  Transmission Date: 20191004
  Serious: Yes (Other)
  Sender: FDA-Public Use
  Company Number: US-PFIZER INC-2019247343

PATIENT
  Age: 77 Year
  Sex: Female

DRUGS (5)
  1. IBRANCE [Suspect]
     Active Substance: PALBOCICLIB
     Indication: MALIGNANT NEOPLASM OF PLEURA
  2. EXEMESTAN [Concomitant]
     Active Substance: EXEMESTANE
     Dosage: 25 MG, UNK
     Dates: start: 201801
  3. IBRANCE [Suspect]
     Active Substance: PALBOCICLIB
     Indication: TUMOUR MARKER INCREASED
  4. IBRANCE [Suspect]
     Active Substance: PALBOCICLIB
     Indication: BREAST CANCER FEMALE
     Dosage: 75 MG, 1X/DAY (21)
     Dates: start: 2017
  5. AREDIA [Concomitant]
     Active Substance: PAMIDRONATE DISODIUM
     Dosage: UNK, (EVERY OTHER MONTH)
     Dates: start: 2014

REACTIONS (2)
  - Diabetes mellitus [Unknown]
  - Blood cholesterol abnormal [Unknown]
